FAERS Safety Report 4993046-6 (Version None)
Quarter: 2006Q1

REPORT INFORMATION
  Report Type: 
  Country: None (occurrence: None)
  Receive Date: 20060313
  Receipt Date: 20060120
  Transmission Date: 20060701
  Serious: No
  Sender: FDA-Public Use
  Company Number: 2006-BP-00048BP

PATIENT
  Sex: Female

DRUGS (5)
  1. SPIRIVA [Suspect]
     Indication: CHRONIC OBSTRUCTIVE PULMONARY DISEASE
     Dosage: 18 MCG (18 MCG, 1 PUFF AM), IH
     Route: 055
     Dates: start: 20051230
  2. LISINOPRIL [Concomitant]
  3. NEXIUM [Concomitant]
  4. RHINOCORT [Concomitant]
  5. DELSYM (DEXTROMETHORPHAN HYDRBROMIDE) [Concomitant]

REACTIONS (2)
  - DYSPHONIA [None]
  - EYELIDS PRURITUS [None]
